FAERS Safety Report 10087022 (Version 1)
Quarter: 2014Q2

REPORT INFORMATION
  Report Type: Spontaneous
  Country: DE (occurrence: DE)
  Receive Date: 20140418
  Receipt Date: 20140418
  Transmission Date: 20141212
  Serious: Yes (Other)
  Sender: FDA-Public Use
  Company Number: DE-JNJFOC-20140410507

PATIENT
  Age: 89 Year
  Sex: Female
  Weight: 63.99 kg

DRUGS (7)
  1. XARELTO [Suspect]
     Indication: CEREBROVASCULAR ACCIDENT PROPHYLAXIS
     Route: 048
     Dates: start: 201306, end: 201312
  2. XARELTO [Suspect]
     Indication: ATRIAL FIBRILLATION
     Route: 048
     Dates: start: 201306, end: 201312
  3. PIPAMPERONE [Concomitant]
     Route: 065
  4. L-THYROXIN [Concomitant]
     Route: 065
  5. REPAGLINIDE [Concomitant]
     Route: 065
  6. FUROSEMID [Concomitant]
     Route: 065
  7. LEVEMIR [Concomitant]
     Route: 065

REACTIONS (1)
  - Deep vein thrombosis [Unknown]
